FAERS Safety Report 25807488 (Version 3)
Quarter: 2025Q4

REPORT INFORMATION
  Report Type: Spontaneous
  Country: US (occurrence: US)
  Receive Date: 20250916
  Receipt Date: 20251110
  Transmission Date: 20260117
  Serious: No
  Sender: PFIZER
  Company Number: US-PFIZER INC-202500178863

PATIENT
  Age: 16 Year
  Sex: Male

DRUGS (1)
  1. GENOTROPIN [Suspect]
     Active Substance: SOMATROPIN
     Indication: Growth hormone deficiency
     Dosage: 2.8 MG, DAILY (EACH NIGHT)
     Dates: start: 202402

REACTIONS (4)
  - Device connection issue [Unknown]
  - Device defective [Unknown]
  - Device difficult to use [Unknown]
  - Incorrect dose administered by device [Unknown]
